FAERS Safety Report 6978418-2 (Version None)
Quarter: 2010Q3

REPORT INFORMATION
  Report Type: 
  Country: None (occurrence: None)
  Receive Date: 20100913
  Receipt Date: 20100831
  Transmission Date: 20110219
  Serious: Yes (Hospitalization)
  Sender: FDA-Public Use
  Company Number: PHHY2010NL57897

PATIENT
  Sex: Male

DRUGS (3)
  1. ZOMETA [Suspect]
     Dosage: 4 MG/5 ML, IV IN 20 MINUTES
     Dates: start: 20090706
  2. ZOMETA [Suspect]
     Dosage: 4 MG/5 ML
     Dates: start: 20100730
  3. ZOMETA [Suspect]
     Dosage: 4 MG/5 ML
     Dates: start: 20100817

REACTIONS (2)
  - CARDIAC FAILURE [None]
  - HYPOTENSION [None]
